FAERS Safety Report 4655226-9 (Version None)
Quarter: 2005Q2

REPORT INFORMATION
  Report Type: 
  Country: None (occurrence: None)
  Receive Date: 20050506
  Receipt Date: 20050419
  Transmission Date: 20051028
  Serious: Yes (Other)
  Sender: FDA-Public Use
  Company Number: 2005JP000854

PATIENT
  Age: 16 Year
  Sex: Female
  Weight: 54 kg

DRUGS (3)
  1. CEFAZOLIN [Suspect]
     Indication: DRUG USE FOR UNKNOWN INDICATION
     Dosage: 1G PER DAY
     Route: 042
     Dates: start: 20050331
  2. HYDROCORTISONE [Concomitant]
     Dosage: 100MG PER DAY
     Route: 042
     Dates: start: 20050330, end: 20050331
  3. FAMOTIDINE [Concomitant]
     Route: 065
     Dates: start: 20050330, end: 20050331

REACTIONS (11)
  - ANAPHYLACTOID REACTION [None]
  - DYSPNOEA [None]
  - ERYTHEMA [None]
  - EYELID OEDEMA [None]
  - EYELIDS PRURITUS [None]
  - PHARYNGEAL OEDEMA [None]
  - PRURITUS [None]
  - SPEECH DISORDER [None]
  - SWELLING FACE [None]
  - THROAT IRRITATION [None]
  - VARICOSE VEIN [None]
